FAERS Safety Report 25373400 (Version 1)
Quarter: 2025Q2

REPORT INFORMATION
  Report Type: Spontaneous
  Country: US (occurrence: US)
  Receive Date: 20250529
  Receipt Date: 20250529
  Transmission Date: 20250716
  Serious: No
  Sender: CIPLA
  Company Number: US-CIPLA LTD.-2024US13481

PATIENT

DRUGS (4)
  1. ALBUTEROL [Suspect]
     Active Substance: ALBUTEROL
     Indication: Product used for unknown indication
  2. ALBUTEROL [Suspect]
     Active Substance: ALBUTEROL
     Dates: start: 202411
  3. ALBUTEROL [Suspect]
     Active Substance: ALBUTEROL
     Dates: start: 202411
  4. BEVESPI AEROSPHERE [Concomitant]
     Active Substance: FORMOTEROL FUMARATE\GLYCOPYRROLATE
     Indication: Product used for unknown indication
     Route: 065

REACTIONS (4)
  - Product use complaint [Unknown]
  - Device delivery system issue [Unknown]
  - Product quality issue [Unknown]
  - Device mechanical issue [Unknown]

NARRATIVE: CASE EVENT DATE: 20241101
